FAERS Safety Report 7732363-3 (Version None)
Quarter: 2011Q3

REPORT INFORMATION
  Report Type: 
  Country: None (occurrence: None)
  Receive Date: 20110906
  Receipt Date: 20110825
  Transmission Date: 20111222
  Serious: Yes (Other)
  Sender: FDA-Public Use
  Company Number: US-ASTRAZENECA-2011SE51426

PATIENT
  Sex: Female

DRUGS (1)
  1. FASLODEX [Suspect]
     Route: 030

REACTIONS (6)
  - BONE PAIN [None]
  - DRY MOUTH [None]
  - HEADACHE [None]
  - DIZZINESS [None]
  - BREAST CANCER [None]
  - ABDOMINAL PAIN UPPER [None]
